FAERS Safety Report 5785569-7 (Version None)
Quarter: 2008Q2

REPORT INFORMATION
  Report Type: 
  Country: None (occurrence: None)
  Receive Date: 20080620
  Receipt Date: 20080620
  Transmission Date: 20081010
  Serious: Yes (Hospitalization)
  Sender: FDA-Public Use
  Company Number: None

PATIENT
  Age: 50 Year
  Sex: Female
  Weight: 68.0396 kg

DRUGS (1)
  1. DASATINUB 50 MG 50 MG BID [Suspect]
     Indication: SARCOMA
     Dates: start: 20080527, end: 20080611

REACTIONS (5)
  - BACK PAIN [None]
  - DIARRHOEA [None]
  - MASS [None]
  - SPINAL CORD COMPRESSION [None]
  - SPINAL CORD DISORDER [None]
